FAERS Safety Report 18996540 (Version 1)
Quarter: 2021Q1

REPORT INFORMATION
  Report Type: Report from Study
  Country: AU (occurrence: AU)
  Receive Date: 20210311
  Receipt Date: 20210311
  Transmission Date: 20210420
  Serious: Yes (Other)
  Sender: FDA-Public Use
  Company Number: NVSC2021AU047380

PATIENT
  Age: 60 Year
  Sex: Female

DRUGS (1)
  1. EZETIMIBE. [Suspect]
     Active Substance: EZETIMIBE
     Indication: BLOOD CHOLESTEROL INCREASED
     Dosage: UNK
     Route: 065

REACTIONS (9)
  - Osteoarthritis [Unknown]
  - Illness [Unknown]
  - Multiple sclerosis [Unknown]
  - Breast cancer [Unknown]
  - Scar [Unknown]
  - Osteoporosis [Unknown]
  - Syncope [Unknown]
  - Hyperkeratosis [Unknown]
  - Blood cholesterol increased [Unknown]

NARRATIVE: CASE EVENT DATE: 20210224
